FAERS Safety Report 5349429-8 (Version None)
Quarter: 2007Q2

REPORT INFORMATION
  Report Type: 
  Country: None (occurrence: None)
  Receive Date: 20070607
  Receipt Date: 20070531
  Transmission Date: 20071010
  Serious: Yes (Other)
  Sender: FDA-Public Use
  Company Number: US-ROCHE-487103

PATIENT
  Age: 22 Year
  Sex: Female

DRUGS (3)
  1. ACCUTANE [Suspect]
     Indication: DRUG USE FOR UNKNOWN INDICATION
     Dosage: REPORTED AS 2 CAPSULES PER DAY
     Route: 065
     Dates: start: 20070101
  2. ACCUTANE [Suspect]
     Dosage: REPORTED AS 4 CAPSULES PER DAY FOR 4 OR 5 DAYS
     Route: 065
  3. ACCUTANE [Suspect]
     Dosage: REPORTED AS 2 CAPSULES PER DAY
     Route: 065
     Dates: end: 20070215

REACTIONS (2)
  - NO ADVERSE EFFECT [None]
  - PREGNANCY [None]
